FAERS Safety Report 5140888-2 (Version None)
Quarter: 2006Q4

REPORT INFORMATION
  Report Type: 
  Country: None (occurrence: None)
  Receive Date: 20060905
  Receipt Date: 20060726
  Transmission Date: 20070319
  Serious: Yes (Hospitalization)
  Sender: FDA-Public Use
  Company Number: 06P-163-0338943-00

PATIENT
  Sex: Male

DRUGS (2)
  1. TRICOR [Suspect]
     Indication: HYPERTRIGLYCERIDAEMIA
     Dosage: 1 IN 1 D, PER ORAL
     Route: 048
     Dates: start: 20050101
  2. ATORVASTATIN CALCIUM [Concomitant]

REACTIONS (1)
  - PANCREATITIS [None]
